FAERS Safety Report 9926246 (Version 3)
Quarter: 2014Q1

REPORT INFORMATION
  Report Type: Spontaneous
  Country: RS (occurrence: RS)
  Receive Date: 20140226
  Receipt Date: 20140307
  Transmission Date: 20141002
  Serious: Yes (Death, Hospitalization, Other)
  Sender: FDA-Public Use
  Company Number: PHHY2014RS023387

PATIENT
  Age: 75 Year
  Sex: Female

DRUGS (5)
  1. EXELON PATCH [Suspect]
     Indication: DEMENTIA ALZHEIMER^S TYPE
     Dosage: 9.5 MG ONCE A DAY
     Route: 062
     Dates: start: 2013
  2. MIRAPEXIN [Concomitant]
     Indication: EXTRAPYRAMIDAL DISORDER
     Dosage: UNK UKN, UNK
     Dates: start: 2011
  3. LYRICA [Concomitant]
     Indication: ANXIETY DISORDER DUE TO A GENERAL MEDICAL CONDITION
     Dosage: UNK UKN, UNK
     Dates: start: 201206
  4. RIVOTRIL [Concomitant]
     Indication: ANXIETY DISORDER DUE TO A GENERAL MEDICAL CONDITION
     Dosage: UNK UKN, UNK
     Dates: start: 201206
  5. MADOPAR [Concomitant]
     Indication: PARKINSON^S DISEASE
     Dosage: UNK UKN, UNK
     Dates: start: 2012

REACTIONS (3)
  - Pneumonia [Fatal]
  - Femoral neck fracture [Unknown]
  - Pyrexia [Unknown]
